FAERS Safety Report 6747914-5 (Version None)
Quarter: 2010Q2

REPORT INFORMATION
  Report Type: 
  Country: None (occurrence: None)
  Receive Date: 20100528
  Receipt Date: 20100517
  Transmission Date: 20101027
  Serious: Yes (Hospitalization)
  Sender: FDA-Public Use
  Company Number: US-ELI_LILLY_AND_COMPANY-US201003007167

PATIENT
  Sex: Female

DRUGS (14)
  1. FORTEO [Suspect]
     Indication: OSTEOPOROSIS
     Dosage: 20 UG, DAILY (1/D)
     Dates: start: 20090701, end: 20100401
  2. PAXIL [Concomitant]
  3. PREVACID [Concomitant]
  4. ZETIA [Concomitant]
  5. RESTASIS [Concomitant]
  6. LOMOTIL [Concomitant]
  7. WELCHOL [Concomitant]
  8. CALCIUM CARBONATE [Concomitant]
  9. MULTI-VITAMIN [Concomitant]
  10. METFORMIN HYDROCHLORIDE [Concomitant]
  11. OXYCODONE [Concomitant]
  12. CITRUCEL [Concomitant]
  13. VITAMIN B COMPLEX TAB [Concomitant]
  14. TYLENOL (CAPLET) [Concomitant]

REACTIONS (4)
  - ASTHENIA [None]
  - FALL [None]
  - PALPITATIONS [None]
  - SPINAL COLUMN STENOSIS [None]
